FAERS Safety Report 11988464 (Version 1)
Quarter: 2016Q1

REPORT INFORMATION
  Report Type: Spontaneous
  Country: IT (occurrence: IT)
  Receive Date: 20160202
  Receipt Date: 20160202
  Transmission Date: 20160526
  Serious: Yes (Hospitalization)
  Sender: FDA-Public Use
  Company Number: IT-TEVA-628848ACC

PATIENT
  Age: 84 Year
  Sex: Male

DRUGS (2)
  1. FENOFIBRATE. [Suspect]
     Active Substance: FENOFIBRATE
     Indication: DYSLIPIDAEMIA
     Dosage: 145 MILLIGRAM DAILY; 145 MG DAILY
     Route: 048
  2. SIMVASTATIN + EZETIMIBE [Suspect]
     Active Substance: EZETIMIBE\SIMVASTATIN
     Indication: DYSLIPIDAEMIA
     Dosage: 50 MILLIGRAM DAILY; 50 MG DAILY
     Route: 048

REACTIONS (1)
  - Steatohepatitis [Recovering/Resolving]

NARRATIVE: CASE EVENT DATE: 20151002
